FAERS Safety Report 18865917 (Version 4)
Quarter: 2021Q4

REPORT INFORMATION
  Report Type: Spontaneous
  Country: US (occurrence: US)
  Receive Date: 20210208
  Receipt Date: 20211006
  Transmission Date: 20220303
  Serious: Yes (Other)
  Sender: FDA-Public Use
  Company Number: US-PFIZER INC-2021106696

PATIENT
  Age: 60 Year
  Sex: Female

DRUGS (2)
  1. XELJANZ XR [Suspect]
     Active Substance: TOFACITINIB CITRATE
     Indication: Rheumatoid arthritis
     Dosage: 11 MG, DAILY
     Route: 048
     Dates: start: 202009
  2. METHOTREXATE SODIUM [Concomitant]
     Active Substance: METHOTREXATE SODIUM
     Dosage: UNK

REACTIONS (10)
  - Oesophageal candidiasis [Unknown]
  - Red blood cell sedimentation rate decreased [Unknown]
  - Cardiac stress test abnormal [Unknown]
  - Hepatic enzyme increased [Unknown]
  - Vomiting [Recovered/Resolved]
  - Diarrhoea [Recovered/Resolved]
  - Gastrooesophageal reflux disease [Unknown]
  - Chronic gastritis [Unknown]
  - Viral infection [Unknown]
  - Product dose omission in error [Unknown]
